FAERS Safety Report 21442100 (Version 1)
Quarter: 2022Q4

REPORT INFORMATION
  Report Type: Spontaneous
  Country: US (occurrence: US)
  Receive Date: 20221011
  Receipt Date: 20221011
  Transmission Date: 20230113
  Serious: No
  Sender: FDA-Public Use
  Company Number: US-Sprout Pharmaceuticals, Inc.-2022SP000097

PATIENT
  Age: 58 Year
  Sex: Female
  Weight: 64.014 kg

DRUGS (5)
  1. ADDYI [Suspect]
     Active Substance: FLIBANSERIN
     Indication: Libido decreased
     Route: 048
     Dates: start: 20220402, end: 20220403
  2. PROGESTERONE [Concomitant]
     Active Substance: PROGESTERONE
     Indication: Libido decreased
     Route: 065
  3. ESTROGENS [Concomitant]
     Active Substance: ESTROGENS
     Indication: Libido decreased
     Route: 065
  4. WELLBUTRIN [Concomitant]
     Active Substance: BUPROPION HYDROCHLORIDE
     Indication: Product used for unknown indication
  5. MAGNESIUM [Concomitant]
     Active Substance: MAGNESIUM
     Indication: Product used for unknown indication

REACTIONS (7)
  - Hangover [Recovered/Resolved]
  - Migraine [Recovered/Resolved]
  - Malaise [Recovered/Resolved]
  - Sick leave [Recovered/Resolved]
  - Product use in unapproved indication [Recovered/Resolved]
  - Drug intolerance [Recovered/Resolved]
  - Dizziness [Recovered/Resolved]

NARRATIVE: CASE EVENT DATE: 20220402
